FAERS Safety Report 5843857-X (Version None)
Quarter: 2008Q3

REPORT INFORMATION
  Report Type: 
  Country: None (occurrence: None)
  Receive Date: 20080813
  Receipt Date: 20080806
  Transmission Date: 20090109
  Serious: Yes (Other)
  Sender: FDA-Public Use
  Company Number: PHHY2008BR17027

PATIENT
  Age: 74 Year
  Sex: Male

DRUGS (7)
  1. RASILEZ [Suspect]
     Indication: HYPERTENSION
     Dosage: 150 MG, QD
     Route: 048
     Dates: start: 20080605, end: 20080703
  2. RASILEZ [Suspect]
     Indication: CARDIAC FAILURE
  3. ANCORON [Concomitant]
  4. CLORANA [Concomitant]
  5. MAREVAN ^BRITISH DRUG HOUSES^ [Concomitant]
  6. CARVEDILOL [Concomitant]
  7. ALDACTONE [Concomitant]

REACTIONS (6)
  - BLOOD CREATININE INCREASED [None]
  - BLOOD POTASSIUM INCREASED [None]
  - BLOOD UREA INCREASED [None]
  - DIZZINESS [None]
  - HYPOTENSION [None]
  - URINE OUTPUT DECREASED [None]
